FAERS Safety Report 4515506-4 (Version None)
Quarter: 2004Q4

REPORT INFORMATION
  Report Type: 
  Country: None (occurrence: None)
  Receive Date: 20041126
  Receipt Date: 20041112
  Transmission Date: 20050328
  Serious: Yes (Death)
  Sender: FDA-Public Use
  Company Number: 205160

PATIENT
  Age: 52 Year
  Sex: Female

DRUGS (3)
  1. AVONEX [Suspect]
     Indication: MULTIPLE SCLEROSIS
     Dosage: 30 UQ;; QW; IM
     Route: 030
     Dates: start: 20010712
  2. LOPRESSOR [Concomitant]
  3. DYAZIDE [Concomitant]

REACTIONS (2)
  - ACUTE RESPIRATORY FAILURE [None]
  - BRONCHIAL OBSTRUCTION [None]
